FAERS Safety Report 5964002-6 (Version None)
Quarter: 2008Q4

REPORT INFORMATION
  Report Type: 
  Country: None (occurrence: None)
  Receive Date: 20081120
  Receipt Date: 20081112
  Transmission Date: 20090506
  Serious: Yes (Hospitalization)
  Sender: FDA-Public Use
  Company Number: 2008SP021688

PATIENT
  Age: 36 Year
  Sex: Female
  Weight: 71 kg

DRUGS (6)
  1. PEG-INTRON [Suspect]
     Indication: HEPATITIS C
     Dosage: 100 MCG QW UNK
     Dates: start: 20080226
  2. RIBAVIRIN [Suspect]
     Indication: HEPATITIS C
     Dosage: 1000 MG QD PO
     Route: 048
     Dates: start: 20080226
  3. PARACETAMOL [Concomitant]
  4. LOPINAVIR AND RITONAVIR [Concomitant]
  5. TENOFOVIR [Concomitant]
  6. EMTRICITABINE [Concomitant]

REACTIONS (3)
  - DISEASE RECURRENCE [None]
  - STAPHYLOCOCCAL OSTEOMYELITIS [None]
  - SUBCUTANEOUS ABSCESS [None]
